FAERS Safety Report 14928829 (Version 1)
Quarter: 2018Q2

REPORT INFORMATION
  Report Type: Spontaneous
  Country: DE (occurrence: DE)
  Receive Date: 20180523
  Receipt Date: 20180523
  Transmission Date: 20180711
  Serious: Yes (Hospitalization)
  Sender: FDA-Public Use
  Company Number: DE-PFIZER INC-2018204118

PATIENT
  Age: 89 Year
  Sex: Female

DRUGS (6)
  1. SIMVASTATIN. [Concomitant]
     Active Substance: SIMVASTATIN
     Dosage: 40 MG, 0.5-0-0--0
  2. CANDESARTAN. [Concomitant]
     Active Substance: CANDESARTAN
     Dosage: 16 MG, 2X/DAY (1-0-1-0)
  3. TROSPIUM [Suspect]
     Active Substance: TROSPIUM
     Dosage: 15 MG, 2X/DAY (1-0-1-0)
  4. TOLTERODINE TARTRATE. [Suspect]
     Active Substance: TOLTERODINE TARTRATE
     Dosage: 1 MG, 1X/DAY (0-0-0-1)
  5. HYDROCHLOROTHIAZID [Concomitant]
     Active Substance: HYDROCHLOROTHIAZIDE
     Dosage: 12.5 MG, 1X/DAY (1-0-0-0)
  6. ACETYLSALICYLSAEURE [Concomitant]
     Active Substance: ASPIRIN
     Dosage: 100 MG, 1X/DAY (1-0-0-0)

REACTIONS (5)
  - Tachycardia [Unknown]
  - Palpitations [Unknown]
  - Arrhythmia [Unknown]
  - Dyspnoea [Unknown]
  - Product used for unknown indication [Unknown]
